FAERS Safety Report 4643382-8 (Version None)
Quarter: 2005Q2

REPORT INFORMATION
  Report Type: 
  Country: None (occurrence: None)
  Receive Date: 20050421
  Receipt Date: 20050311
  Transmission Date: 20051028
  Serious: Yes (Hospitalization)
  Sender: FDA-Public Use
  Company Number: KII-2005-0015492

PATIENT
  Age: 11 Month
  Sex: Female

DRUGS (1)
  1. OXYCONTIN [Suspect]
     Dosage: SEE TEXT, ORAL
     Route: 048

REACTIONS (11)
  - ACCIDENTAL EXPOSURE [None]
  - AGITATION [None]
  - BODY TEMPERATURE INCREASED [None]
  - CARDIAC ENZYMES INCREASED [None]
  - DEPRESSED LEVEL OF CONSCIOUSNESS [None]
  - ELECTROCARDIOGRAM CHANGE [None]
  - LETHARGY [None]
  - MIOSIS [None]
  - RESPIRATION ABNORMAL [None]
  - SINUS TACHYCARDIA [None]
  - STRIDOR [None]
